FAERS Safety Report 9702096 (Version 1)
Quarter: 2013Q4

REPORT INFORMATION
  Report Type: Spontaneous
  Country: US (occurrence: None)
  Receive Date: 20131120
  Receipt Date: 20131120
  Transmission Date: 20140711
  Serious: No
  Sender: FDA-Public Use
  Company Number: None

PATIENT
  Age: 63 None
  Sex: 0

DRUGS (9)
  1. ALBUTEROL SULFATE [Suspect]
     Indication: CHRONIC OBSTRUCTIVE PULMONARY DISEASE
     Dosage: 1/2 YR AGO 1 VILE 2 TO 3 TIMES DAILY (NEBULIZER) ATOMIZER
  2. AVA[RP [Concomitant]
  3. FLONASE [Concomitant]
  4. FLOVENT [Concomitant]
  5. PRILOSEC [Concomitant]
  6. SINGULAIR [Concomitant]
  7. XARELTO [Concomitant]
  8. METOPROLOL [Concomitant]
  9. VITAMIN [Concomitant]

REACTIONS (1)
  - Dyspnoea [None]
